FAERS Safety Report 23554612 (Version 1)
Quarter: 2024Q1

REPORT INFORMATION
  Report Type: Spontaneous
  Country: US (occurrence: US)
  Receive Date: 20240222
  Receipt Date: 20240222
  Transmission Date: 20240410
  Serious: No
  Sender: FDA-Public Use
  Company Number: US-LANTHEUS-LMI-2023-00839

PATIENT
  Age: 35 Year
  Sex: Female
  Weight: 78 kg

DRUGS (5)
  1. DEFINITY [Suspect]
     Active Substance: PERFLUTREN
     Indication: Echocardiogram
     Dosage: 2 ML (2.5 ML DEFINITY PREPARED IN 8 ML NORMAL SALINE)
     Route: 042
     Dates: start: 20230712, end: 20230712
  2. NIFEDIPINE [Concomitant]
     Active Substance: NIFEDIPINE
     Indication: Pre-eclampsia
     Dosage: 30 MILLIGRAM (EXTENDED RELEASE); QD
     Route: 048
     Dates: start: 20230606, end: 20230711
  3. LOVENOX [Concomitant]
     Active Substance: ENOXAPARIN SODIUM
     Indication: Product used for unknown indication
     Dosage: 80 MILLIGRAM, QD
     Dates: start: 20230610
  4. IRON [Concomitant]
     Active Substance: IRON
     Indication: Supplementation therapy
     Dosage: UNK, QD
  5. VITAMINS NOS [Concomitant]
     Active Substance: VITAMINS
     Indication: Supplementation therapy
     Dosage: UNK, QD

REACTIONS (7)
  - Spinal pain [Recovering/Resolving]
  - Pain in extremity [Recovering/Resolving]
  - Tinnitus [Recovering/Resolving]
  - Crying [Recovering/Resolving]
  - Back pain [Recovering/Resolving]
  - Chest pain [Recovering/Resolving]
  - Headache [Recovering/Resolving]

NARRATIVE: CASE EVENT DATE: 20230712
